FAERS Safety Report 8242848-1 (Version None)
Quarter: 2012Q1

REPORT INFORMATION
  Report Type: 
  Country: None (occurrence: None)
  Receive Date: 20120314
  Receipt Date: 20100526
  Transmission Date: 20120608
  Serious: Yes (Other)
  Sender: FDA-Public Use
  Company Number: PHHY2010US34070

PATIENT

DRUGS (2)
  1. FANAPT [Suspect]
  2. AMOXICILLIN [Concomitant]

REACTIONS (2)
  - WEIGHT INCREASED [None]
  - OEDEMA [None]
